FAERS Safety Report 7792484-6 (Version None)
Quarter: 2011Q4

REPORT INFORMATION
  Report Type: 
  Country: None (occurrence: None)
  Receive Date: 20111003
  Receipt Date: 20110921
  Transmission Date: 20120403
  Serious: Yes (Hospitalization)
  Sender: FDA-Public Use
  Company Number: JP-PFIZER INC-2011234059

PATIENT
  Age: 70 Year
  Sex: Male

DRUGS (3)
  1. PRAVASTATIN SODIUM [Concomitant]
  2. AMLODIPINE BESYLATE [Suspect]
     Dosage: 5 MG, UNK
  3. MOBIC [Suspect]
     Route: 048

REACTIONS (1)
  - INTERSTITIAL LUNG DISEASE [None]
